FAERS Safety Report 9806261 (Version 1)
Quarter: 2014Q1

REPORT INFORMATION
  Report Type: Spontaneous
  Country: IN (occurrence: None)
  Receive Date: 20140107
  Receipt Date: 20140107
  Transmission Date: 20141002
  Serious: Yes (Other)
  Sender: FDA-Public Use
  Company Number: AUR-APL-2014-00014

PATIENT
  Age: 5 Month
  Sex: Female
  Weight: 3.4 kg

DRUGS (1)
  1. CEFTRIAXONE [Suspect]
     Indication: DIARRHOEA INFECTIOUS

REACTIONS (4)
  - Convulsion [None]
  - Shigella test positive [None]
  - Pathogen resistance [None]
  - General physical health deterioration [None]
